FAERS Safety Report 5870608-5 (Version None)
Quarter: 2008Q3

REPORT INFORMATION
  Report Type: 
  Country: None (occurrence: None)
  Receive Date: 20080904
  Receipt Date: 20080901
  Transmission Date: 20090109
  Serious: Yes (Other)
  Sender: FDA-Public Use
  Company Number: B0531725A

PATIENT
  Age: 25 Year
  Sex: Female

DRUGS (8)
  1. ZOVIRAX [Suspect]
     Indication: HERPES ZOSTER
     Dosage: 400MG FIVE TIMES PER DAY
     Route: 048
     Dates: start: 20080728
  2. CINAL [Concomitant]
     Route: 048
  3. CELTECT [Concomitant]
     Dosage: 60MG PER DAY
     Route: 048
  4. TRYPTANOL [Concomitant]
     Indication: DEPRESSED MOOD
     Dosage: 10MG PER DAY
     Route: 048
  5. CHINESE MEDICINE [Concomitant]
     Dosage: 7.5MG PER DAY
     Route: 048
  6. LOXONIN [Concomitant]
     Indication: PAIN
     Dosage: 120MG PER DAY
     Route: 065
  7. CYANOCOBALAMIN [Concomitant]
     Route: 065
  8. CHINESE MEDICINE [Concomitant]
     Route: 048

REACTIONS (2)
  - EYELID DISORDER [None]
  - FACE OEDEMA [None]
